FAERS Safety Report 9725608 (Version 1)
Quarter: 2013Q4

REPORT INFORMATION
  Report Type: Spontaneous
  Country: US (occurrence: None)
  Receive Date: 20131202
  Receipt Date: 20131202
  Transmission Date: 20140711
  Serious: No
  Sender: FDA-Public Use
  Company Number: None

PATIENT
  Age: 56 Year
  Sex: Female
  Weight: 78.47 kg

DRUGS (1)
  1. DIAZEPAM [Suspect]
     Indication: MUSCLE SPASMS
     Dosage: 1/2 TOL TABLET THREE TIMES DAILY TAKEN BY MOUTH
     Dates: start: 20131127, end: 20131130

REACTIONS (2)
  - Neuralgia [None]
  - Product quality issue [None]
